FAERS Safety Report 5389828-1 (Version None)
Quarter: 2007Q3

REPORT INFORMATION
  Report Type: 
  Country: None (occurrence: None)
  Receive Date: 20070718
  Receipt Date: 20070711
  Transmission Date: 20080115
  Serious: Yes (Other)
  Sender: FDA-Public Use
  Company Number: PHNR2007AU01347

PATIENT
  Age: 35 Year
  Sex: Female
  Weight: 85 kg

DRUGS (7)
  1. OXYTOCIN [Suspect]
     Dosage: 30 MG, 1 TIME
     Dates: start: 20061030
  2. MARCAINE [Suspect]
     Dosage: 2 ML, 1 TIME
     Dates: start: 20061030
  3. CEFAZOLIN SODIUM [Suspect]
     Dosage: 1 G, 1 TIME
     Dates: start: 20061030
  4. FLAGYL [Suspect]
     Dosage: 500 MG, 1 TIME
     Route: 048
     Dates: start: 20061030
  5. INDOMETHACIN [Suspect]
     Dosage: 100 MG, 1 TIME
     Dates: start: 20061030
  6. PHENERGAN HCL [Suspect]
     Dosage: 1 TIME
  7. FENTANYL [Suspect]
     Dosage: 500 UG, DAILY
     Route: 048
     Dates: start: 20061030, end: 20061103

REACTIONS (5)
  - DIZZINESS [None]
  - LOSS OF CONSCIOUSNESS [None]
  - MUSCLE TWITCHING [None]
  - SOMNOLENCE [None]
  - VISUAL DISTURBANCE [None]
